FAERS Safety Report 4307171-6 (Version None)
Quarter: 2004Q1

REPORT INFORMATION
  Report Type: 
  Country: None (occurrence: None)
  Receive Date: 20040225
  Receipt Date: 20040213
  Transmission Date: 20041129
  Serious: Yes (Other)
  Sender: FDA-Public Use
  Company Number: 2004-BP-01158NB

PATIENT
  Age: 75 Year
  Sex: Male

DRUGS (2)
  1. MICARDIS [Suspect]
     Indication: HYPERTENSION
     Dosage: 20 MG (20 MG) PO
     Route: 048
     Dates: start: 20031001
  2. PREDNISOLONE [Concomitant]

REACTIONS (1)
  - INTERSTITIAL LUNG DISEASE [None]
